FAERS Safety Report 5001477-3 (Version None)
Quarter: 2006Q2

REPORT INFORMATION
  Report Type: 
  Country: None (occurrence: None)
  Receive Date: 20060512
  Receipt Date: 20051207
  Transmission Date: 20061013
  Serious: Yes (Hospitalization)
  Sender: FDA-Public Use
  Company Number: US-MERCK-0512USA01339

PATIENT
  Age: 66 Year
  Sex: Female
  Weight: 102 kg

DRUGS (1)
  1. VIOXX [Suspect]
     Indication: ARTHRITIS
     Route: 048
     Dates: start: 20010101, end: 20040930

REACTIONS (29)
  - ARTHROPATHY [None]
  - ASTHENIA [None]
  - BACK PAIN [None]
  - CARDIAC FAILURE CONGESTIVE [None]
  - CARDIOVASCULAR DISORDER [None]
  - CEREBROVASCULAR ACCIDENT [None]
  - CHEST PAIN [None]
  - DEHYDRATION [None]
  - GASTRITIS HAEMORRHAGIC [None]
  - GLUCOSE TOLERANCE IMPAIRED [None]
  - HYPERTENSION [None]
  - HYPONATRAEMIA [None]
  - HYPOTENSION [None]
  - INTERVERTEBRAL DISC DEGENERATION [None]
  - LACUNAR INFARCTION [None]
  - LEUKOCYTOSIS [None]
  - LUMBAR RADICULOPATHY [None]
  - MELANOSIS COLI [None]
  - MENTAL STATUS CHANGES [None]
  - NEURALGIA [None]
  - OSTEOPENIA [None]
  - PAIN [None]
  - PAIN IN EXTREMITY [None]
  - POLYURIA [None]
  - PYELONEPHRITIS ACUTE [None]
  - REFLUX OESOPHAGITIS [None]
  - SACROILIITIS [None]
  - TRIGGER FINGER [None]
  - UROSEPSIS [None]
